FAERS Safety Report 18722964 (Version 2)
Quarter: 2021Q1

REPORT INFORMATION
  Report Type: Spontaneous
  Country: US (occurrence: US)
  Receive Date: 20210111
  Receipt Date: 20210224
  Transmission Date: 20210419
  Serious: Yes (Hospitalization, Other)
  Sender: FDA-Public Use
  Company Number: US-HORIZON-2021HZN00019

PATIENT

DRUGS (17)
  1. CYTOMEL [Concomitant]
     Active Substance: LIOTHYRONINE SODIUM
     Dosage: UNK
     Route: 048
  2. ESOMEPRAZOLE. [Concomitant]
     Active Substance: ESOMEPRAZOLE MAGNESIUM
     Dosage: 40 MG, QD
     Route: 048
  3. SYNTHROID [Concomitant]
     Active Substance: LEVOTHYROXINE SODIUM
     Dosage: 0.1 MG, QD
     Route: 048
  4. TYLENOL [Concomitant]
     Active Substance: ACETAMINOPHEN
     Dosage: 325 MG (EVERY 4 HOURS)
     Route: 048
  5. CYTOMEL [Concomitant]
     Active Substance: LIOTHYRONINE SODIUM
     Dosage: 5 MG, QD
     Route: 048
  6. FISH OIL [Concomitant]
     Active Substance: FISH OIL
     Dosage: 1000 MG, QD
     Route: 048
  7. CENTRUM SILVER +50 [Concomitant]
     Active Substance: MINERALS\VITAMINS
     Route: 048
  8. FLUTICASONE. [Concomitant]
     Active Substance: FLUTICASONE
     Dosage: 50 UG, BID
     Route: 048
  9. MAGNESIUM [Concomitant]
     Active Substance: MAGNESIUM
     Route: 048
  10. COENZYME Q10 [Concomitant]
     Active Substance: DIETARY SUPPLEMENT\UBIDECARENONE
     Dosage: 300 MG, QD
     Route: 048
  11. PROGESTERONE. [Concomitant]
     Active Substance: PROGESTERONE
     Dosage: 100 MG, QD
     Route: 048
  12. TEPEZZA [Suspect]
     Active Substance: TEPROTUMUMAB-TRBW
     Indication: ENDOCRINE OPHTHALMOPATHY
     Dosage: UNK
     Route: 042
     Dates: start: 202006, end: 202011
  13. COENZYME Q10 [Concomitant]
     Active Substance: DIETARY SUPPLEMENT\UBIDECARENONE
     Dosage: UNK
     Route: 048
  14. SYNTHROID [Concomitant]
     Active Substance: LEVOTHYROXINE SODIUM
     Dosage: 100 MCG BEFORE BREAKFAST
     Route: 048
  15. VERAPAMIL [Concomitant]
     Active Substance: VERAPAMIL HYDROCHLORIDE
     Dosage: 120 MG
     Route: 048
  16. ASPIRIN ENTERIC COATED K.P. [Concomitant]
     Active Substance: ASPIRIN
     Dosage: 81 MG, SINGLE
     Route: 048
  17. APRESOLINE HYDROCHLORIDE [Concomitant]
     Active Substance: HYDRALAZINE HYDROCHLORIDE
     Dosage: 10 MG, TID
     Route: 048

REACTIONS (1)
  - Reversible cerebral vasoconstriction syndrome [Recovering/Resolving]

NARRATIVE: CASE EVENT DATE: 20201118
